FAERS Safety Report 4340028-3 (Version None)
Quarter: 2004Q2

REPORT INFORMATION
  Report Type: 
  Country: None (occurrence: None)
  Receive Date: 20040415
  Receipt Date: 20040415
  Transmission Date: 20050107
  Serious: Yes (Hospitalization)
  Sender: FDA-Public Use
  Company Number: None

PATIENT
  Age: 63 Year
  Sex: Female
  Weight: 71 kg

DRUGS (7)
  1. IRESSA [Suspect]
     Indication: LUNG NEOPLASM MALIGNANT
     Dosage: 250 MG QD PO
     Route: 048
     Dates: start: 20040227
  2. FASLODEX [Suspect]
     Indication: LUNG NEOPLASM MALIGNANT
     Dosage: 250 MG Q MONTH IM
     Route: 030
     Dates: end: 20040330
  3. LISINOPRIL [Concomitant]
  4. TRIAMTERENE [Concomitant]
  5. INDERAL [Concomitant]
  6. VALIUM [Concomitant]
  7. DEXAMETHASONE [Concomitant]

REACTIONS (5)
  - ASTHENIA [None]
  - BRAIN OEDEMA [None]
  - DISEASE PROGRESSION [None]
  - DYSSTASIA [None]
  - FALL [None]
